FAERS Safety Report 21366187 (Version 1)
Quarter: 2022Q3

REPORT INFORMATION
  Report Type: Spontaneous
  Country: GB (occurrence: GB)
  Receive Date: 20220922
  Receipt Date: 20220922
  Transmission Date: 20221027
  Serious: Yes (Other)
  Sender: FDA-Public Use
  Company Number: GB-JNJFOC-20220925665

PATIENT
  Age: 30 Year
  Sex: Male

DRUGS (6)
  1. TREMFYA [Suspect]
     Active Substance: GUSELKUMAB
     Indication: Psoriatic arthropathy
     Dosage: TREATMENT DISCONTINUED FROM MARCH TO MAY 2019
     Route: 058
     Dates: start: 201808
  2. LANSOPRAZOLE [Concomitant]
     Active Substance: LANSOPRAZOLE
  3. SERTRALINE [Concomitant]
     Active Substance: SERTRALINE HYDROCHLORIDE
  4. ALBUTEROL [Concomitant]
     Active Substance: ALBUTEROL
  5. BECLOMETHASONE DIPROPIONATE [Concomitant]
     Active Substance: BECLOMETHASONE DIPROPIONATE
  6. ORLISTAT [Concomitant]
     Active Substance: ORLISTAT

REACTIONS (3)
  - Diverticulitis [Unknown]
  - Abscess intestinal [Unknown]
  - Weight increased [Unknown]

NARRATIVE: CASE EVENT DATE: 20200801
